FAERS Safety Report 5477909-3 (Version None)
Quarter: 2007Q4

REPORT INFORMATION
  Report Type: 
  Country: None (occurrence: None)
  Receive Date: 20071002
  Receipt Date: 20070913
  Transmission Date: 20080405
  Serious: Yes (Death)
  Sender: FDA-Public Use
  Company Number: 2007EU002041

PATIENT
  Age: 39 Year
  Sex: Male

DRUGS (3)
  1. TACROLIMUS [Suspect]
     Indication: RENAL TRANSPLANT
  2. MYCOPHENOLATE MOFETIL [Concomitant]
  3. CORTICOSTEROIDS [Concomitant]

REACTIONS (4)
  - DRUG TOXICITY [None]
  - HEMIPARESIS [None]
  - HEMIPLEGIA [None]
  - LEUKOENCEPHALOPATHY [None]
